FAERS Safety Report 9827779 (Version 2)
Quarter: 2015Q4

REPORT INFORMATION
  Report Type: Report from Study
  Country: US (occurrence: US)
  Receive Date: 20140117
  Receipt Date: 20151022
  Transmission Date: 20160305
  Serious: Yes (Death, Other)
  Sender: FDA-Public Use
  Company Number: US-BRISTOL-MYERS SQUIBB COMPANY-20038576

PATIENT
  Age: 0 Day
  Sex: Female
  Weight: .41 kg

DRUGS (3)
  1. ATAZANAVIR SULFATE [Suspect]
     Active Substance: ATAZANAVIR SULFATE
     Indication: PRODUCT USED FOR UNKNOWN INDICATION
     Dosage: 300 MG, QD
     Route: 064
     Dates: start: 20131127, end: 20131217
  2. NORVIR [Concomitant]
     Active Substance: RITONAVIR
     Indication: PRODUCT USED FOR UNKNOWN INDICATION
     Dosage: 100 MG, UNK
     Route: 064
     Dates: start: 20131127, end: 20131217
  3. TRUVADA [Concomitant]
     Active Substance: EMTRICITABINE\TENOFOVIR DISOPROXIL FUMARATE
     Indication: PRODUCT USED FOR UNKNOWN INDICATION
     Dosage: 1 DF, QD
     Route: 064
     Dates: start: 20131127, end: 20131217

REACTIONS (4)
  - Death neonatal [Fatal]
  - Foetal exposure during pregnancy [Unknown]
  - Premature baby [Unknown]
  - Umbilical cord prolapse [Unknown]

NARRATIVE: CASE EVENT DATE: 20131217
